FAERS Safety Report 16877038 (Version 1)
Quarter: 2019Q4

REPORT INFORMATION
  Report Type: Spontaneous
  Country: US (occurrence: US)
  Receive Date: 20191002
  Receipt Date: 20191002
  Transmission Date: 20200122
  Serious: Yes (Death)
  Sender: FDA-Public Use
  Company Number: US-ROCHE-2429375

PATIENT
  Age: 72 Year
  Sex: Male

DRUGS (9)
  1. PREDNISONE. [Concomitant]
     Active Substance: PREDNISONE
     Route: 065
  2. ESBRIET [Suspect]
     Active Substance: PIRFENIDONE
     Dosage: TAKE 2 TABLET X1 WEEK WITH MEALS
     Route: 048
  3. BUMEX [Concomitant]
     Active Substance: BUMETANIDE
     Route: 065
  4. INSULIN LISPRO [Concomitant]
     Active Substance: INSULIN LISPRO
  5. PRILOSEC [Concomitant]
     Active Substance: OMEPRAZOLE MAGNESIUM
     Route: 065
  6. ESBRIET [Suspect]
     Active Substance: PIRFENIDONE
     Dosage: TAKE 3 TABLET WITH MEALS
     Route: 048
  7. ERYTHROMYCINE [ERYTHROMYCIN] [Concomitant]
     Active Substance: ERYTHROMYCIN
  8. NIACIN. [Concomitant]
     Active Substance: NIACIN
  9. ESBRIET [Suspect]
     Active Substance: PIRFENIDONE
     Indication: PRODUCT USED FOR UNKNOWN INDICATION
     Dosage: TAKE 1 TABLET X1 WEEK WITH MEALS
     Route: 048

REACTIONS (1)
  - Death [Fatal]

NARRATIVE: CASE EVENT DATE: 20190921
